FAERS Safety Report 9043593 (Version 1)
Quarter: 2013Q1

REPORT INFORMATION
  Report Type: Report from Study
  Country: US (occurrence: US)
  Receive Date: 20130129
  Receipt Date: 20130129
  Transmission Date: 20140127
  Serious: No
  Sender: FDA-Public Use
  Company Number: US-ABBOTT-12P-163-0909701-00

PATIENT
  Age: 63 Year
  Sex: Female

DRUGS (21)
  1. HUMIRA 40 MG/0.8 ML PEN [Suspect]
     Indication: PSORIASIS
     Dates: start: 20120119, end: 20120315
  2. VICODIN [Concomitant]
     Indication: PRODUCT USED FOR UNKNOWN INDICATION
     Dosage: 5/500 MG EVERY 8 HOURS AS NEEDED
     Route: 048
  3. CELEBREX [Concomitant]
     Indication: PRODUCT USED FOR UNKNOWN INDICATION
     Dosage: 200 MG DAILY
     Route: 048
  4. TYLENOL PM [Concomitant]
     Indication: PRODUCT USED FOR UNKNOWN INDICATION
     Dosage: 2 TABS AT BEDTIME
     Route: 048
  5. NOVOLOG [Concomitant]
     Indication: DIABETES MELLITUS
     Dosage: IN THE MORNING
  6. NOVOLOG [Concomitant]
     Dosage: AT NOON
  7. NOVOLOG [Concomitant]
     Dosage: AT SUPPER
  8. LANTUS [Concomitant]
     Indication: DIABETES MELLITUS
     Dosage: AT BEDTIME
  9. METFORMIN [Concomitant]
     Indication: DIABETES MELLITUS
     Dosage: IN THE MORNING
  10. METFORMIN [Concomitant]
     Dosage: AT SUPPER
  11. METFORMIN [Concomitant]
     Dosage: AT BEDTIME
     Route: 048
  12. LOTENSIN [Concomitant]
     Indication: BLOOD PRESSURE
     Dosage: 40 MG DAILY
     Route: 048
  13. LOPRESSOR [Concomitant]
     Indication: BLOOD PRESSURE
     Route: 048
  14. NORVASC [Concomitant]
     Indication: BLOOD PRESSURE
     Dosage: 10 MG DAILY
     Route: 048
  15. ASA [Concomitant]
     Indication: CARDIAC DISORDER
     Dosage: 81 MG DAILY
     Route: 048
  16. LIPITOR [Concomitant]
     Indication: CARDIAC DISORDER
     Dosage: 80 MG DAILY
  17. PLAVIX [Concomitant]
     Indication: CARDIAC DISORDER
     Dosage: 75 MG DAILY
     Route: 048
  18. AMBIEN CR [Concomitant]
     Indication: INSOMNIA
     Dosage: 12.5 MG DAILYAT BEDTIME
     Route: 048
  19. NEXIUM [Concomitant]
     Indication: GASTRIC DISORDER
     Dosage: ONE ORAL TWICE A DAY
     Route: 048
  20. METHOTREXATE [Concomitant]
     Indication: PRODUCT USED FOR UNKNOWN INDICATION
     Dosage: 6 TABS EVERY SUNDAY
     Route: 048
  21. NEURONTIN [Concomitant]
     Indication: PRODUCT USED FOR UNKNOWN INDICATION
     Route: 048

REACTIONS (8)
  - Pain [Not Recovered/Not Resolved]
  - Nausea [Recovering/Resolving]
  - Dysgeusia [Unknown]
  - Headache [Recovering/Resolving]
  - Night sweats [Recovering/Resolving]
  - Diarrhoea [Recovering/Resolving]
  - Psoriasis [Not Recovered/Not Resolved]
  - Psoriatic arthropathy [Not Recovered/Not Resolved]
